FAERS Safety Report 8342425 (Version 2)
Quarter: 2013Q2

REPORT INFORMATION
  Report Type: Spontaneous
  Country: US (occurrence: None)
  Receive Date: 20111202
  Receipt Date: 20121203
  Transmission Date: 20140414
  Serious: Yes (Other)
  Sender: FDA-Public Use
  Company Number: 2011SP037383

PATIENT
  Age: 25 Year
  Sex: Female
  Weight: 77.1 kg

DRUGS (6)
  1. NUVARING (ETONOGESTREL (+) ETHINYL ESTRADIOL) VAGINAL RING [Suspect]
     Indication: PRODUCT USED FOR UNKNOWN INDICATION
     Dates: start: 20090604, end: 20090814
  2. NUVARING (ETONOGESTREL (+) ETHINYL ESTRADIOL) VAGINAL RING [Suspect]
     Indication: CONTRACEPTION
     Dates: start: 20090604, end: 20090814
  3. NUVARING (ETONOGESTREL (+) ETHINYL ESTRADIOL) VAGINAL RING [Suspect]
     Dates: start: 20090604, end: 20090814
  4. COUMADIN (WARFARIN SODIUM) [Suspect]
     Indication: COAGULOPATHY
     Dates: end: 20090815
  5. RELPAX (ELETRIPTAN HYDROBROMIDE) [Suspect]
     Indication: HEADACHE
  6. TREXIMET [Suspect]
     Indication: HEADACHE

REACTIONS (18)
  - PULMONARY EMBOLISM [None]
  - DEEP VEIN THROMBOSIS [None]
  - Coagulopathy [None]
  - Chest pain [None]
  - Dyspnoea [None]
  - Back pain [None]
  - Vaginal infection [None]
  - Headache [None]
  - Alopecia [None]
  - Visual acuity reduced [None]
  - Pain in extremity [None]
  - Diplopia [None]
  - Facial pain [None]
  - Abdominal pain upper [None]
  - Dysarthria [None]
  - Dry throat [None]
  - Dysphagia [None]
  - Insomnia [None]
